FAERS Safety Report 4849816-8 (Version None)
Quarter: 2005Q4

REPORT INFORMATION
  Report Type: 
  Country: None (occurrence: None)
  Receive Date: 20051209
  Receipt Date: 20050907
  Transmission Date: 20060501
  Serious: Yes (Death, Hospitalization)
  Sender: FDA-Public Use
  Company Number: MY-MERCK-0509MYS00006

PATIENT
  Age: 74 Year
  Sex: Male

DRUGS (6)
  1. ISOSORBIDE MONONITRATE [Concomitant]
     Indication: MYOCARDIAL ISCHAEMIA
     Route: 065
  2. ZOCOR [Suspect]
     Indication: HYPERLIPIDAEMIA
     Route: 048
     Dates: end: 20050415
  3. TRIMETAZIDINE HYDROCHLORIDE [Concomitant]
     Indication: MYOCARDIAL ISCHAEMIA
     Route: 065
  4. FUROSEMIDE [Concomitant]
     Indication: CARDIAC FAILURE CONGESTIVE
     Route: 065
  5. OMEPRAZOLE [Concomitant]
     Indication: GASTRITIS
     Route: 065
  6. ASPIRIN [Concomitant]
     Indication: MYOCARDIAL ISCHAEMIA
     Route: 065

REACTIONS (3)
  - HEPATITIS [None]
  - RHABDOMYOLYSIS [None]
  - SEPSIS [None]
